FAERS Safety Report 6526956-9 (Version None)
Quarter: 2010Q1

REPORT INFORMATION
  Report Type: 
  Country: None (occurrence: None)
  Receive Date: 20100105
  Receipt Date: 20091222
  Transmission Date: 20100710
  Serious: No
  Sender: FDA-Public Use
  Company Number: US-B.I. PHARMACEUTICALS,INC./RIDGEFIELD-2009-BP-14692BP

PATIENT
  Sex: Female

DRUGS (4)
  1. AGGRENOX [Suspect]
     Indication: CEREBROVASCULAR ACCIDENT PROPHYLAXIS
     Route: 048
     Dates: start: 20091101, end: 20091101
  2. METOPROLOL TARTRATE [Concomitant]
     Indication: HYPERTENSION
  3. AMITIZIA [Concomitant]
  4. OXYCONTIN [Concomitant]
     Indication: ARTHRITIS

REACTIONS (2)
  - FEELING HOT [None]
  - HEADACHE [None]
